FAERS Safety Report 20929376 (Version 1)
Quarter: 2022Q2

REPORT INFORMATION
  Report Type: Spontaneous
  Country: DE (occurrence: DE)
  Receive Date: 20220608
  Receipt Date: 20220608
  Transmission Date: 20220721
  Serious: Yes (Hospitalization)
  Sender: FDA-Public Use
  Company Number: None

PATIENT
  Age: 30 Year
  Sex: Female

DRUGS (1)
  1. TYSABRI [Suspect]
     Active Substance: NATALIZUMAB
     Indication: Multiple sclerosis
     Route: 058
     Dates: start: 20211201, end: 20220309

REACTIONS (4)
  - Vaccination site reaction [Recovered/Resolved with Sequelae]
  - Neutralising antibodies positive [Recovered/Resolved with Sequelae]
  - Multiple sclerosis relapse [Unknown]
  - Magnetic resonance imaging abnormal [Unknown]

NARRATIVE: CASE EVENT DATE: 20220309
